FAERS Safety Report 16736642 (Version 2)
Quarter: 2019Q3

REPORT INFORMATION
  Report Type: Spontaneous
  Country: JP (occurrence: JP)
  Receive Date: 20190823
  Receipt Date: 20190916
  Transmission Date: 20191005
  Serious: Yes (Death, Hospitalization, Other)
  Sender: FDA-Public Use
  Company Number: JP-009507513-1907JPN000473J

PATIENT
  Age: 71 Year
  Sex: Male
  Weight: 49 kg

DRUGS (10)
  1. AMOXAN [Concomitant]
     Active Substance: AMOXAPINE
     Indication: INSOMNIA
     Dosage: 1 DOSAGE FORM, QD
     Route: 048
  2. METHYCOBAL [Concomitant]
     Active Substance: METHYLCOBALAMIN
     Indication: WOUND COMPLICATION
     Dosage: 3 DOSAGE FORM, TID
     Route: 048
     Dates: start: 20190405
  3. SULPIRIDE [Concomitant]
     Active Substance: SULPIRIDE
     Indication: INSOMNIA
     Dosage: 1 DOSAGE FORM, QD
     Route: 048
  4. KEYTRUDA [Suspect]
     Active Substance: PEMBROLIZUMAB
     Indication: NON-SMALL CELL LUNG CANCER
     Dosage: 200 MILLIGRAM, Q3W
     Route: 041
     Dates: start: 20190523, end: 20190523
  5. FERROUS SULFATE. [Concomitant]
     Active Substance: FERROUS SULFATE
     Indication: ANAEMIA
     Dosage: 2 DOSAGE FORM, BID
     Route: 048
     Dates: start: 20190410
  6. ZOLPIDEM TARTRATE OD [Concomitant]
     Active Substance: ZOLPIDEM TARTRATE
     Indication: INSOMNIA
     Dosage: 0.5 DOSAGE FORM, QD
     Route: 048
  7. AMBROXOL HYDROCHLORIDE [Concomitant]
     Active Substance: AMBROXOL HYDROCHLORIDE
     Indication: PRODUCTIVE COUGH
     Dosage: 1 DOSAGE FORM, QD
     Route: 048
     Dates: start: 20190405
  8. SILECE [Concomitant]
     Active Substance: FLUNITRAZEPAM
     Indication: INSOMNIA
     Dosage: 0.5 DOSAGE FORM, QD
     Route: 048
  9. NICO [Concomitant]
     Dosage: 1 DOSAGE FORM, QD
     Route: 048
  10. LANSOPRAZOLE. [Concomitant]
     Active Substance: LANSOPRAZOLE
     Indication: GASTRITIS
     Dosage: 1 DOSAGE FORM, QD
     Route: 048

REACTIONS (2)
  - Inappropriate antidiuretic hormone secretion [Fatal]
  - Malignant neoplasm progression [Fatal]

NARRATIVE: CASE EVENT DATE: 201906
